FAERS Safety Report 21047982 (Version 2)
Quarter: 2025Q1

REPORT INFORMATION
  Report Type: Spontaneous
  Country: IE (occurrence: IE)
  Receive Date: 20220706
  Receipt Date: 20250212
  Transmission Date: 20250409
  Serious: Yes (Other)
  Sender: PFIZER
  Company Number: IE-PFIZER INC-PV202200016072

PATIENT
  Sex: Male

DRUGS (2)
  1. VYNDAQEL [Interacting]
     Active Substance: TAFAMIDIS MEGLUMINE
  2. ROSUVASTATIN [Interacting]
     Active Substance: ROSUVASTATIN

REACTIONS (2)
  - Drug interaction [Unknown]
  - Rhabdomyolysis [Unknown]
